FAERS Safety Report 4690345-2 (Version None)
Quarter: 2005Q2

REPORT INFORMATION
  Report Type: 
  Country: None (occurrence: None)
  Receive Date: 20050615
  Receipt Date: 20050606
  Transmission Date: 20051028
  Serious: Yes (Hospitalization)
  Sender: FDA-Public Use
  Company Number: IT-ROCHE-406751

PATIENT
  Age: 59 Year
  Sex: Female

DRUGS (2)
  1. ROCEPHIN [Suspect]
     Indication: BRONCHITIS ACUTE
     Route: 030
     Dates: start: 20050530, end: 20050530
  2. ACETYLCYSTEINE [Concomitant]
     Indication: BRONCHITIS ACUTE
     Route: 030
     Dates: start: 20050530, end: 20050530

REACTIONS (4)
  - ANAPHYLACTIC SHOCK [None]
  - HYPERHIDROSIS [None]
  - PERIPHERAL CIRCULATORY FAILURE [None]
  - PRURITUS GENERALISED [None]
